FAERS Safety Report 25406956 (Version 2)
Quarter: 2025Q3

REPORT INFORMATION
  Report Type: Spontaneous
  Country: BR (occurrence: BR)
  Receive Date: 20250606
  Receipt Date: 20250704
  Transmission Date: 20251020
  Serious: No
  Sender: JOHNSON AND JOHNSON
  Company Number: BR-JNJFOC-20250531947

PATIENT
  Age: 54 Year
  Sex: Male
  Weight: 82 kg

DRUGS (1)
  1. SIMPONI [Suspect]
     Active Substance: GOLIMUMAB
     Indication: Psoriatic arthropathy
     Dosage: STRENGTH: 50.00 MG / 0.50 ML
     Route: 058

REACTIONS (2)
  - Musculoskeletal stiffness [Recovering/Resolving]
  - Device issue [Unknown]

NARRATIVE: CASE EVENT DATE: 20250401
